FAERS Safety Report 19707383 (Version 2)
Quarter: 2021Q3

REPORT INFORMATION
  Report Type: Spontaneous
  Country: US (occurrence: US)
  Receive Date: 20210817
  Receipt Date: 20210925
  Transmission Date: 20211014
  Serious: No
  Sender: FDA-Public Use
  Company Number: US-JNJFOC-20210803825

PATIENT

DRUGS (1)
  1. WOMENS ROGAINE UNSCENTED [Suspect]
     Active Substance: MINOXIDIL
     Indication: PRODUCT USED FOR UNKNOWN INDICATION
     Dosage: JUST ONCE
     Route: 065

REACTIONS (4)
  - Seborrhoea [Unknown]
  - Hair texture abnormal [Unknown]
  - Alopecia [Unknown]
  - Product physical issue [Unknown]
